FAERS Safety Report 10692351 (Version 1)
Quarter: 2015Q1

REPORT INFORMATION
  Report Type: Spontaneous
  Country: US (occurrence: None)
  Receive Date: 20150102
  Receipt Date: 20150102
  Transmission Date: 20150720
  Serious: Yes (Life-Threatening, Hospitalization, Other)
  Sender: FDA-Public Use
  Company Number: ABR_01844_2014

PATIENT
  Age: 65 Year
  Sex: Female
  Weight: 66 kg

DRUGS (1)
  1. EDARBYCLOR [Suspect]
     Active Substance: AZILSARTAN KAMEDOXOMIL\CHLORTHALIDONE
     Indication: HYPERTENSION
     Dosage: 40/12.5 AND THEN 40/25
     Route: 048
     Dates: start: 20140904, end: 20141004

REACTIONS (1)
  - Hyponatraemia [None]

NARRATIVE: CASE EVENT DATE: 20141004
